FAERS Safety Report 6937601-2 (Version None)
Quarter: 2010Q3

REPORT INFORMATION
  Report Type: 
  Country: None (occurrence: None)
  Receive Date: 20100823
  Receipt Date: 20100823
  Transmission Date: 20110219
  Serious: Yes (Disabling)
  Sender: FDA-Public Use
  Company Number: None

PATIENT
  Sex: Female
  Weight: 59.8748 kg

DRUGS (1)
  1. PREDNISONE [Suspect]
     Indication: TEMPORAL ARTERITIS
     Dosage: 2 PILLS EVERY MORN ORAL
     Route: 048
     Dates: start: 20100521, end: 20100702

REACTIONS (5)
  - ACTIVITIES OF DAILY LIVING IMPAIRED [None]
  - LOCAL SWELLING [None]
  - MIGRAINE [None]
  - OEDEMA PERIPHERAL [None]
  - TEMPORAL ARTERITIS [None]
